FAERS Safety Report 4772620-6 (Version None)
Quarter: 2005Q3

REPORT INFORMATION
  Report Type: 
  Country: None (occurrence: None)
  Receive Date: 20050919
  Receipt Date: 20050909
  Transmission Date: 20060218
  Serious: Yes (Hospitalization)
  Sender: FDA-Public Use
  Company Number: 200513008FR

PATIENT
  Age: 72 Year
  Sex: Female

DRUGS (1)
  1. TAXOTERE [Suspect]
     Indication: BREAST CANCER
     Route: 042
     Dates: start: 20040924, end: 20041210

REACTIONS (4)
  - CONSTIPATION [None]
  - DIARRHOEA [None]
  - DYSURIA [None]
  - MUCOSAL INFLAMMATION [None]
